FAERS Safety Report 17991107 (Version 1)
Quarter: 2020Q3

REPORT INFORMATION
  Report Type: Spontaneous
  Country: US (occurrence: US)
  Receive Date: 20200707
  Receipt Date: 20200707
  Transmission Date: 20201103
  Serious: Yes (Hospitalization, Other)
  Sender: FDA-Public Use
  Company Number: US-TEVA-2020-US-1796949

PATIENT
  Age: 39 Year
  Sex: Male

DRUGS (16)
  1. ISONIAZID. [Suspect]
     Active Substance: ISONIAZID
     Indication: DISSEMINATED TUBERCULOSIS
     Route: 065
  2. ETHAMBUTOL [Suspect]
     Active Substance: ETHAMBUTOL HYDROCHLORIDE
     Indication: DISSEMINATED TUBERCULOSIS
     Route: 065
  3. RUXOLITINIB [Interacting]
     Active Substance: RUXOLITINIB
     Dosage: IN THE EVENING
     Route: 065
  4. MOXIFLOXACIN. [Concomitant]
     Active Substance: MOXIFLOXACIN
     Indication: DISSEMINATED TUBERCULOSIS
     Route: 065
  5. RIFAMPICIN [Interacting]
     Active Substance: RIFAMPIN
     Indication: DISSEMINATED TUBERCULOSIS
     Dosage: 2 WEEKS COURSE
     Route: 042
  6. PYRAZINAMIDE. [Suspect]
     Active Substance: PYRAZINAMIDE
     Indication: DISSEMINATED TUBERCULOSIS
     Route: 065
  7. RIFAMPICIN [Suspect]
     Active Substance: RIFAMPIN
     Route: 048
  8. RUXOLITINIB [Interacting]
     Active Substance: RUXOLITINIB
     Dosage: IN THE MORNING
     Route: 065
  9. AMPHOTERICIN?B [Concomitant]
     Active Substance: AMPHOTERICIN B
     Indication: HISTOPLASMOSIS
     Route: 065
  10. LINEZOLID. [Concomitant]
     Active Substance: LINEZOLID
     Indication: DISSEMINATED TUBERCULOSIS
     Route: 065
  11. DEXAMETHASONE. [Suspect]
     Active Substance: DEXAMETHASONE
     Indication: INFLAMMATION
     Route: 065
  12. RIFAMPICIN [Suspect]
     Active Substance: RIFAMPIN
     Indication: DISSEMINATED TUBERCULOSIS
     Dosage: INITIAL DOSE UNKNOWN
     Route: 048
  13. FLUCONAZOLE. [Concomitant]
     Active Substance: FLUCONAZOLE
     Indication: HISTOPLASMOSIS
     Route: 065
  14. PREDNISONE. [Suspect]
     Active Substance: PREDNISONE
     Indication: INFLAMMATION
     Dosage: 70 MG
     Route: 065
  15. RUXOLITINIB [Interacting]
     Active Substance: RUXOLITINIB
     Indication: INFLAMMATION
     Dosage: 40 MILLIGRAM DAILY;
     Route: 065
  16. DEXAMETHASONE. [Suspect]
     Active Substance: DEXAMETHASONE
     Indication: INFLAMMATION
     Dosage: 18 MILLIGRAM DAILY; HIGH DOSE
     Route: 065

REACTIONS (6)
  - Inflammation [Recovering/Resolving]
  - Drug ineffective [Unknown]
  - Drug interaction [Unknown]
  - Thrombocytopenia [Recovered/Resolved]
  - Uveitis [Unknown]
  - Paradoxical drug reaction [Recovering/Resolving]
